FAERS Safety Report 17277268 (Version 2)
Quarter: 2020Q2

REPORT INFORMATION
  Report Type: Spontaneous
  Country: US (occurrence: US)
  Receive Date: 20200116
  Receipt Date: 20200508
  Transmission Date: 20200713
  Serious: Yes (Hospitalization)
  Sender: FDA-Public Use
  Company Number: US-BAUSCH-BL-2020-000689

PATIENT
  Age: 53 Year
  Sex: Female

DRUGS (1)
  1. ALBUTEROL. [Suspect]
     Active Substance: ALBUTEROL
     Indication: ASTHMA
     Dosage: NEBULIZATION

REACTIONS (5)
  - Hypotension [Unknown]
  - Respiratory failure [Unknown]
  - Stress cardiomyopathy [Unknown]
  - Therapeutic product effect incomplete [Unknown]
  - Hyperhidrosis [Unknown]
